FAERS Safety Report 5731729-0 (Version None)
Quarter: 2008Q2

REPORT INFORMATION
  Report Type: 
  Country: None (occurrence: None)
  Receive Date: 20080508
  Receipt Date: 20080429
  Transmission Date: 20081010
  Serious: Yes (Hospitalization)
  Sender: FDA-Public Use
  Company Number: PHHY2008HN06084

PATIENT
  Age: 42 Year
  Sex: Female

DRUGS (1)
  1. ZELMAC [Suspect]
     Indication: IRRITABLE BOWEL SYNDROME
     Dosage: 6 MG TWICE A DAY
     Route: 048
     Dates: end: 20080401

REACTIONS (3)
  - DYSPHASIA [None]
  - HEMIPARESIS [None]
  - NERVOUS SYSTEM DISORDER [None]
